FAERS Safety Report 6573423-2 (Version None)
Quarter: 2010Q1

REPORT INFORMATION
  Report Type: 
  Country: None (occurrence: None)
  Receive Date: 20100208
  Receipt Date: 20100201
  Transmission Date: 20100710
  Serious: Yes (Other)
  Sender: FDA-Public Use
  Company Number: AT-ASTRAZENECA-2010SE04348

PATIENT
  Sex: Female

DRUGS (4)
  1. ARIMIDEX [Suspect]
     Indication: BREAST CANCER
     Dosage: DAILY
     Route: 048
     Dates: start: 20090722, end: 20100127
  2. LAMOTIGRINE [Concomitant]
     Indication: EPILEPSY
     Route: 048
  3. TEGRETOL [Concomitant]
     Indication: EPILEPSY
     Route: 048
     Dates: end: 20091204
  4. ADJUVIN [Concomitant]
     Indication: DEPRESSION
     Route: 048
     Dates: start: 20091204

REACTIONS (1)
  - PARTIAL SEIZURES [None]
